FAERS Safety Report 17118465 (Version 1)
Quarter: 2019Q4

REPORT INFORMATION
  Report Type: Spontaneous
  Country: DE (occurrence: DE)
  Receive Date: 20191205
  Receipt Date: 20191205
  Transmission Date: 20200122
  Serious: Yes (Other)
  Sender: FDA-Public Use
  Company Number: DE-BAXTER-2019BAX024912

PATIENT
  Age: 37 Year
  Sex: Male
  Weight: 89 kg

DRUGS (11)
  1. CISPLATIN. [Suspect]
     Active Substance: CISPLATIN
     Indication: DIFFUSE LARGE B-CELL LYMPHOMA
     Route: 065
     Dates: start: 201907, end: 201908
  2. RITUXIMAB. [Suspect]
     Active Substance: RITUXIMAB
     Dosage: 2ND LINE THERAPY, ACCORDING TO R-DHAP REGIMEN, 1 CYCLE
     Route: 065
     Dates: start: 201907, end: 201908
  3. RITUXIMAB. [Suspect]
     Active Substance: RITUXIMAB
     Dosage: 1ST LINE THERAPY, ACCORDING TO R-MTX REGIMEN, 2 CYCLES
     Route: 065
     Dates: start: 201904, end: 201905
  4. DEXAMETHASONE. [Suspect]
     Active Substance: DEXAMETHASONE
     Indication: DIFFUSE LARGE B-CELL LYMPHOMA
     Dosage: 2ND LINE THERAPY, ACCORDING TO R-DHAP REGIMEN, 1 CYCLE
     Route: 065
     Dates: start: 201907, end: 201908
  5. VINCRISTINE [Suspect]
     Active Substance: VINCRISTINE
     Indication: DIFFUSE LARGE B-CELL LYMPHOMA
     Route: 065
     Dates: start: 201811, end: 201904
  6. CYTARABINE. [Suspect]
     Active Substance: CYTARABINE
     Indication: DIFFUSE LARGE B-CELL LYMPHOMA
     Route: 065
  7. DOXIL [Suspect]
     Active Substance: DOXORUBICIN HYDROCHLORIDE
     Indication: DIFFUSE LARGE B-CELL LYMPHOMA
     Route: 065
     Dates: start: 201811, end: 201904
  8. RITUXIMAB. [Suspect]
     Active Substance: RITUXIMAB
     Indication: DIFFUSE LARGE B-CELL LYMPHOMA
     Dosage: 1ST LINE THERAPY, ACCORDING TO R-CHOP REGIMEN, 8 CYCLES
     Route: 065
     Dates: start: 201811, end: 201904
  9. PREDNISONE. [Suspect]
     Active Substance: PREDNISONE
     Indication: DIFFUSE LARGE B-CELL LYMPHOMA
     Route: 065
     Dates: start: 201811, end: 201904
  10. METHOTREXATE. [Suspect]
     Active Substance: METHOTREXATE
     Indication: DIFFUSE LARGE B-CELL LYMPHOMA
     Dosage: 1ST LINE THERAPY, ACCORDING TO R-MTX REGIMEN, 2 CYCLES
     Route: 065
     Dates: start: 201904, end: 201905
  11. ENDOXAN 1G [Suspect]
     Active Substance: CYCLOPHOSPHAMIDE
     Indication: DIFFUSE LARGE B-CELL LYMPHOMA
     Route: 065
     Dates: start: 201811, end: 201904

REACTIONS (1)
  - Neuropathy peripheral [Unknown]

NARRATIVE: CASE EVENT DATE: 201908
